FAERS Safety Report 7913997-X (Version None)
Quarter: 2011Q4

REPORT INFORMATION
  Report Type: 
  Country: None (occurrence: None)
  Receive Date: 20111114
  Receipt Date: 20111114
  Transmission Date: 20120403
  Serious: Yes (Hospitalization)
  Sender: FDA-Public Use
  Company Number: None

PATIENT
  Sex: Male
  Weight: 45.9 kg

DRUGS (15)
  1. PRINCESS MARGARET HOSPITAL MOUTHWASH [Concomitant]
  2. FENTANYL PATCH 200 [Concomitant]
  3. PROCHLOROPERAZINE [Concomitant]
  4. SENNOKOT [Concomitant]
  5. FLUOROURACIL [Suspect]
     Dosage: 4584 MG
  6. CAMPTOSAR [Suspect]
     Dosage: 295 MG
     Dates: end: 20111027
  7. LEUCOVORIN CALCIUM [Suspect]
     Dosage: 655 MG
  8. MS CONTIN [Concomitant]
  9. MORPHINE [Concomitant]
  10. LACTULOSE [Concomitant]
  11. BEVACIZUMAB (RHUMAB VEGF) [Suspect]
     Dosage: 279 MG
     Dates: end: 20111027
  12. GRANISETRON [Concomitant]
  13. GABEPENTIN [Concomitant]
  14. COLACE [Concomitant]
  15. DEXAMETHASONE [Concomitant]

REACTIONS (1)
  - PERFORMANCE STATUS DECREASED [None]
